FAERS Safety Report 4675900-8 (Version None)
Quarter: 2005Q2

REPORT INFORMATION
  Report Type: 
  Country: None (occurrence: None)
  Receive Date: 20050527
  Receipt Date: 20050517
  Transmission Date: 20051028
  Serious: Yes (Hospitalization, Other)
  Sender: FDA-Public Use
  Company Number: US-JNJFOC-20050402912

PATIENT
  Sex: Female
  Weight: 92.99 kg

DRUGS (1)
  1. REMICADE [Suspect]
     Indication: RHEUMATOID ARTHRITIS
     Route: 042

REACTIONS (5)
  - ARTHRALGIA [None]
  - CELLULITIS [None]
  - OEDEMA PERIPHERAL [None]
  - RASH MACULO-PAPULAR [None]
  - SYSTEMIC LUPUS ERYTHEMATOSUS [None]
